FAERS Safety Report 17844703 (Version 2)
Quarter: 2020Q3

REPORT INFORMATION
  Report Type: Spontaneous
  Country: US (occurrence: US)
  Receive Date: 20200601
  Receipt Date: 20200806
  Transmission Date: 20201103
  Serious: Yes (Hospitalization)
  Sender: FDA-Public Use
  Company Number: US-GLAXOSMITHKLINE-US2020AMR089447

PATIENT
  Age: 65 Year
  Sex: Female
  Weight: 71.2 kg

DRUGS (1)
  1. NUCALA [Suspect]
     Active Substance: MEPOLIZUMAB
     Indication: ASTHMA
     Dosage: UNK
     Route: 065
     Dates: start: 2016

REACTIONS (5)
  - Asthma [Unknown]
  - Hospitalisation [Unknown]
  - Asthenia [Unknown]
  - Wrong technique in device usage process [Unknown]
  - Exposure via skin contact [Unknown]

NARRATIVE: CASE EVENT DATE: 201812
